FAERS Safety Report 18421911 (Version 1)
Quarter: 2020Q4

REPORT INFORMATION
  Report Type: Spontaneous
  Country: CA (occurrence: CA)
  Receive Date: 20201023
  Receipt Date: 20201023
  Transmission Date: 20210114
  Serious: Yes (Other)
  Sender: FDA-Public Use
  Company Number: CA-JNJFOC-20201025431

PATIENT
  Age: 48 Year
  Sex: Male

DRUGS (2)
  1. ENTOCORT [Concomitant]
     Active Substance: BUDESONIDE
     Route: 048
  2. INFLIXIMAB, RECOMBINANT [Suspect]
     Active Substance: INFLIXIMAB
     Indication: CROHN^S DISEASE
     Route: 042

REACTIONS (4)
  - Upper limb fracture [Unknown]
  - Infection [Unknown]
  - Inappropriate schedule of product administration [Unknown]
  - Off label use [Unknown]
